FAERS Safety Report 7202827-X (Version None)
Quarter: 2010Q4

REPORT INFORMATION
  Report Type: 
  Country: None (occurrence: None)
  Receive Date: 20101213
  Receipt Date: 20101129
  Transmission Date: 20110411
  Serious: Yes (Hospitalization)
  Sender: FDA-Public Use
  Company Number: 2010027024

PATIENT
  Age: 13 Year
  Sex: Female

DRUGS (5)
  1. VIVAGLOGIN (IMMUNE GLOBULIN SUBCUTANEOUS (HUMAN)) [Suspect]
     Indication: IDIOPATHIC THROMBOCYTOPENIC PURPURA
     Dosage: 160 MG/ML SUBCUTANEOUS
     Route: 058
     Dates: start: 20071101
  2. VIVAGLOGIN (IMMUNE GLOBULIN SUBCUTANEOUS (HUMAN)) [Suspect]
     Indication: INFECTION
     Dosage: 160 MG/ML SUBCUTANEOUS
     Route: 058
     Dates: start: 20071101
  3. CELLCEPT [Concomitant]
  4. BACTRIM /01680801/ (CO-TRIMOXAZOLE) [Concomitant]
  5. CALTRATE /01721501/ (CALTRATE /01721501/) [Concomitant]

REACTIONS (8)
  - BACK PAIN [None]
  - CEREBROVASCULAR DISORDER [None]
  - CHILLS [None]
  - HEADACHE [None]
  - LEUKOPENIA [None]
  - MIGRAINE [None]
  - THROMBOCYTOPENIA [None]
  - VASCULITIS [None]
